FAERS Safety Report 13948578 (Version 1)
Quarter: 2017Q3

REPORT INFORMATION
  Report Type: Spontaneous
  Country: US (occurrence: US)
  Receive Date: 20170907
  Receipt Date: 20170907
  Transmission Date: 20171128
  Serious: Yes (Other)
  Sender: FDA-Public Use
  Company Number: None

PATIENT
  Sex: Female
  Weight: 72 kg

DRUGS (19)
  1. CARAFATE [Concomitant]
     Active Substance: SUCRALFATE
  2. VITAMIN D [Concomitant]
     Active Substance: CHOLECALCIFEROL
  3. VITAMIN B12 [Concomitant]
     Active Substance: CYANOCOBALAMIN
  4. HYDROCODONE [Concomitant]
     Active Substance: HYDROCODONE
  5. MELOXICAM. [Concomitant]
     Active Substance: MELOXICAM
  6. IRON [Concomitant]
     Active Substance: IRON
  7. ZINC. [Concomitant]
     Active Substance: ZINC
  8. LYRICA [Concomitant]
     Active Substance: PREGABALIN
  9. SAVELLA [Concomitant]
     Active Substance: MILNACIPRAN HYDROCHLORIDE
  10. MELATONIN [Concomitant]
     Active Substance: MELATONIN
  11. ZOLPIDEM ER [Concomitant]
     Active Substance: ZOLPIDEM\ZOLPIDEM TARTRATE
  12. INTERMEZZO [Concomitant]
     Active Substance: ZOLPIDEM TARTRATE
  13. CALCIUM/MAGNESIUM [Concomitant]
     Active Substance: CALCIUM\MAGNESIUM
  14. VITAMIN C [Concomitant]
     Active Substance: ASCORBIC ACID
  15. SUBOXONE [Suspect]
     Active Substance: BUPRENORPHINE HYDROCHLORIDE\NALOXONE HYDROCHLORIDE
     Indication: PAIN
     Dosage: ?          QUANTITY:90 FILMS;?3 TIMES A DAY SUBLINGUAL
     Route: 060
     Dates: start: 20170905, end: 20170906
  16. LEVOTHYROXIN [Concomitant]
     Active Substance: LEVOTHYROXINE
  17. OMEPRAZOLE. [Concomitant]
     Active Substance: OMEPRAZOLE
  18. PROBIOTICS [Concomitant]
     Active Substance: PROBIOTICS NOS
  19. MULTI-VITAMINS [Concomitant]

REACTIONS (5)
  - Headache [None]
  - Disturbance in attention [None]
  - Palpitations [None]
  - Agitation [None]
  - Dizziness [None]

NARRATIVE: CASE EVENT DATE: 20170905
